FAERS Safety Report 10507515 (Version 2)
Quarter: 2014Q4

REPORT INFORMATION
  Report Type: Spontaneous
  Country: IT (occurrence: IT)
  Receive Date: 20141009
  Receipt Date: 20141009
  Transmission Date: 20150528
  Serious: Yes (Congenital Anomaly)
  Sender: FDA-Public Use
  Company Number: IT-EISAI MEDICAL RESEARCH-E2090-03311-SPO-IT

PATIENT
  Age: 34 Year
  Sex: Female
  Weight: 63 kg

DRUGS (4)
  1. ZONEGRAN [Suspect]
     Active Substance: ZONISAMIDE
     Indication: EPILEPSY
     Route: 048
     Dates: start: 20080126
  2. FOLINA [Concomitant]
     Active Substance: FOLIC ACID
     Route: 048
     Dates: start: 20140324, end: 20140430
  3. TEGRETOL [Suspect]
     Active Substance: CARBAMAZEPINE
     Indication: EPILEPSY
     Dosage: 1800 MG DAILY
     Route: 048
     Dates: start: 20080126
  4. FRISIUM [Concomitant]
     Active Substance: CLOBAZAM
     Route: 048

REACTIONS (4)
  - Exposure during pregnancy [Recovered/Resolved with Sequelae]
  - Congenital hydrocephalus [Recovered/Resolved with Sequelae]
  - Cephalo-pelvic disproportion [Recovered/Resolved with Sequelae]
  - Abortion induced [Recovered/Resolved]

NARRATIVE: CASE EVENT DATE: 2014
